FAERS Safety Report 9026655 (Version 1)
Quarter: 2013Q1

REPORT INFORMATION
  Report Type: Spontaneous
  Country: US (occurrence: US)
  Receive Date: 20130123
  Receipt Date: 20130123
  Transmission Date: 20140127
  Serious: Yes (Hospitalization, Other)
  Sender: FDA-Public Use
  Company Number: US-009507513-2011SP016572

PATIENT
  Sex: 0

DRUGS (1)
  1. NUVARING [Suspect]
     Indication: CONTRACEPTION
     Dosage: UNK
     Route: 067
     Dates: start: 20070606, end: 20080726

REACTIONS (4)
  - Hypercoagulation [Unknown]
  - Deep vein thrombosis [Unknown]
  - Pulmonary embolism [Recovered/Resolved]
  - Incorrect drug administration duration [Unknown]
